FAERS Safety Report 4386172-6 (Version None)
Quarter: 2004Q2

REPORT INFORMATION
  Report Type: 
  Country: None (occurrence: None)
  Receive Date: 20040622
  Receipt Date: 20040609
  Transmission Date: 20050107
  Serious: Yes (Hospitalization)
  Sender: FDA-Public Use
  Company Number: 2004038607

PATIENT
  Age: 97 Year
  Sex: Female

DRUGS (5)
  1. FLUCONAZOLE [Suspect]
     Indication: ILL-DEFINED DISORDER
     Dosage: 1 GRAM , ORAL
     Route: 048
     Dates: start: 20040219
  2. CLAVULIN (AMOXICILLIN TRIHYDRATE, CLAVULANATE POTASSIUM) [Suspect]
     Indication: LUNG DISORDER
     Dosage: 2 GRAM, ORAL
     Route: 048
     Dates: start: 20040219, end: 20040224
  3. ZOLPIDEM (ZOLPIDEM) [Concomitant]
  4. LERCANIDIPINE HYDROCHLORIDE (LERCANIDIPINE) [Concomitant]
  5. ISOSORBIDE DINITRATE [Concomitant]

REACTIONS (4)
  - EPISTAXIS [None]
  - OEDEMA PERIPHERAL [None]
  - RASH ERYTHEMATOUS [None]
  - VASCULAR PURPURA [None]
